FAERS Safety Report 10052383 (Version 1)
Quarter: 2014Q2

REPORT INFORMATION
  Report Type: Spontaneous
  Country: US (occurrence: None)
  Receive Date: 20140401
  Receipt Date: 20140401
  Transmission Date: 20141212
  Serious: Yes (Disabling)
  Sender: FDA-Public Use
  Company Number: None

PATIENT
  Age: 30 Year
  Sex: Female

DRUGS (1)
  1. AFRIN NOSE SPRAY [Suspect]
     Dosage: 2-3 SPRAYS EVERY 10-12 HRS INHALATION
     Dates: start: 20140327, end: 20140330

REACTIONS (1)
  - Anosmia [None]
